FAERS Safety Report 9418685 (Version 1)
Quarter: 2013Q3

REPORT INFORMATION
  Report Type: Spontaneous
  Country: GB (occurrence: GB)
  Receive Date: 20130725
  Receipt Date: 20130725
  Transmission Date: 20140515
  Serious: Yes (Other)
  Sender: FDA-Public Use
  Company Number: GB-ACCORD-018580

PATIENT
  Age: 85 Year
  Sex: Male

DRUGS (2)
  1. AMLODIPINE [Concomitant]
  2. ALLOPURINOL [Suspect]
     Indication: GOUT

REACTIONS (2)
  - Gouty tophus [Recovering/Resolving]
  - Pain in extremity [Recovering/Resolving]
